FAERS Safety Report 7637862-0 (Version None)
Quarter: 2011Q3

REPORT INFORMATION
  Report Type: 
  Country: None (occurrence: None)
  Receive Date: 20110727
  Receipt Date: 20110715
  Transmission Date: 20111222
  Serious: Yes (Hospitalization)
  Sender: FDA-Public Use
  Company Number: DE-JNJFOC-20110207118

PATIENT
  Sex: Female
  Weight: 52.4 kg

DRUGS (12)
  1. IBUPROFEN [Concomitant]
     Route: 048
     Dates: start: 20060119
  2. FOLSAN [Concomitant]
     Route: 048
     Dates: start: 20100311
  3. CALCIUM ACETATE [Concomitant]
     Route: 048
     Dates: start: 20100311
  4. GOLIMUMAB [Suspect]
     Route: 058
     Dates: start: 20110301
  5. GOLIMUMAB [Suspect]
     Route: 058
     Dates: start: 20110107
  6. ACTONEL [Concomitant]
     Route: 048
     Dates: start: 20100311
  7. METHOTREXATE [Suspect]
     Indication: RHEUMATOID ARTHRITIS
     Route: 048
     Dates: start: 20060625, end: 20070715
  8. METHOTREXATE [Concomitant]
     Route: 065
     Dates: start: 20070722
  9. BONDIOL [Concomitant]
     Route: 048
     Dates: start: 20100311
  10. GOLIMUMAB [Suspect]
     Indication: RHEUMATOID ARTHRITIS
     Route: 058
     Dates: start: 20060719
  11. GOLIMUMAB [Suspect]
     Route: 058
     Dates: start: 20110331
  12. PREDNISOLONE [Concomitant]
     Route: 048
     Dates: start: 20070131

REACTIONS (1)
  - GOITRE [None]
